FAERS Safety Report 11883630 (Version 1)
Quarter: 2016Q1

REPORT INFORMATION
  Report Type: Spontaneous
  Country: GB (occurrence: GB)
  Receive Date: 20160101
  Receipt Date: 20160101
  Transmission Date: 20160526
  Serious: Yes (Life-Threatening)
  Sender: FDA-Public Use
  Company Number: GB-AUROBINDO-AUR-APL-2015-11969

PATIENT
  Age: 66 Year

DRUGS (7)
  1. MORPHINE SULPHATE [Concomitant]
     Active Substance: MORPHINE SULFATE
     Indication: PAIN
     Dosage: 2.5-5ML WHEN REQUIRED.
     Route: 048
  2. SUMATRIPTAN. [Concomitant]
     Active Substance: SUMATRIPTAN
     Indication: MIGRAINE
     Dosage: 50 MG, UNK
     Route: 048
  3. ZOMORPH [Concomitant]
     Active Substance: MORPHINE SULFATE
     Indication: PAIN
     Dosage: 10 MG, UNK
     Route: 048
  4. AMITRIPTYLINE [Concomitant]
     Active Substance: AMITRIPTYLINE
     Indication: PAIN
     Dosage: 10-20MG AT NIGHT.
     Route: 048
  5. AMLODIPINE [Concomitant]
     Active Substance: AMLODIPINE BESYLATE
     Indication: HYPERTENSIVE NEPHROPATHY
     Dosage: 5 MG, ONCE A DAY
     Route: 048
  6. RAMIPRIL 10MG [Suspect]
     Active Substance: RAMIPRIL
     Indication: HYPERTENSIVE NEPHROPATHY
     Dosage: 10 MG, ONCE A DAY
     Route: 048
     Dates: start: 20150301, end: 20151126
  7. SIMVASTATIN 10MG [Suspect]
     Active Substance: SIMVASTATIN
     Indication: HYPERCHOLESTEROLAEMIA
     Dosage: 10 MG, ONCE A DAY
     Dates: start: 20151027, end: 20151126

REACTIONS (2)
  - Tongue oedema [Recovered/Resolved]
  - Angioedema [Recovered/Resolved]

NARRATIVE: CASE EVENT DATE: 20151126
